FAERS Safety Report 20032310 (Version 1)
Quarter: 2021Q4

REPORT INFORMATION
  Report Type: Spontaneous
  Country: US (occurrence: US)
  Receive Date: 20211103
  Receipt Date: 20211103
  Transmission Date: 20220303
  Serious: Yes (Other)
  Sender: FDA-Public Use
  Company Number: US-ALLERGAN-2121639US

PATIENT
  Age: 15 Year
  Sex: Male

DRUGS (3)
  1. VRAYLAR [Suspect]
     Active Substance: CARIPRAZINE
     Indication: Schizophrenia
     Dosage: UNK
     Dates: start: 202105
  2. VRAYLAR [Suspect]
     Active Substance: CARIPRAZINE
     Dosage: 125 MG
     Dates: end: 20210504
  3. CAPLYTA [Suspect]
     Active Substance: LUMATEPERONE
     Indication: Schizophrenia
     Dosage: 42 MG, SINGLE
     Route: 048
     Dates: start: 20210505, end: 20210505

REACTIONS (5)
  - Extrapyramidal disorder [Recovered/Resolved]
  - Off label use [Unknown]
  - Ill-defined disorder [Unknown]
  - Headache [Recovered/Resolved]
  - Nausea [Recovered/Resolved]

NARRATIVE: CASE EVENT DATE: 20210506
